FAERS Safety Report 5019001-8 (Version None)
Quarter: 2006Q2

REPORT INFORMATION
  Report Type: 
  Country: None (occurrence: None)
  Receive Date: 20060606
  Receipt Date: 20060428
  Transmission Date: 20061013
  Serious: Yes (Hospitalization)
  Sender: FDA-Public Use
  Company Number: JP-JPN-A200601437

PATIENT
  Age: 60 Year
  Sex: Female

DRUGS (1)
  1. PAXIL [Suspect]
     Indication: DEPRESSION
     Dosage: 20MG PER DAY
     Route: 048
     Dates: start: 20060427

REACTIONS (5)
  - DIARRHOEA [None]
  - HOT FLUSH [None]
  - NAUSEA [None]
  - SEROTONIN SYNDROME [None]
  - TREMOR [None]
